FAERS Safety Report 21923906 (Version 1)
Quarter: 2023Q1

REPORT INFORMATION
  Report Type: Spontaneous
  Country: US (occurrence: US)
  Receive Date: 20230130
  Receipt Date: 20230130
  Transmission Date: 20230418
  Serious: No
  Sender: FDA-Public Use
  Company Number: US-Accord-288079

PATIENT
  Sex: Male
  Weight: 72.57 kg

DRUGS (1)
  1. FLUOROURACIL [Suspect]
     Active Substance: FLUOROURACIL
     Indication: Scab
     Dosage: APPLY ONCE DAILY TO EFFECTED AREA
     Dates: start: 202211

REACTIONS (7)
  - Flushing [Unknown]
  - Erythema [Unknown]
  - Swelling face [Unknown]
  - Facial pain [Unknown]
  - Skin haemorrhage [Unknown]
  - Insomnia [Unknown]
  - Discomfort [Unknown]
